FAERS Safety Report 19512744 (Version 2)
Quarter: 2021Q3

REPORT INFORMATION
  Report Type: Spontaneous
  Country: US (occurrence: US)
  Receive Date: 20210709
  Receipt Date: 20210818
  Transmission Date: 20211014
  Serious: No
  Sender: FDA-Public Use
  Company Number: US-JNJFOC-20210700313

PATIENT
  Sex: Female

DRUGS (1)
  1. WOMENS ROGAINE UNSCENTED [Suspect]
     Active Substance: MINOXIDIL
     Indication: ALOPECIA
     Dosage: HALF A CAP FULL, BUT SINCE THE TOP BLUE SEAL IS BROKEN IT^S AIRY NOT SURE IF USING ENOUGH ONCE A DAY
     Route: 061

REACTIONS (2)
  - Incorrect dose administered [Unknown]
  - Product physical issue [Unknown]
